FAERS Safety Report 6826179-X (Version None)
Quarter: 2010Q3

REPORT INFORMATION
  Report Type: 
  Country: None (occurrence: None)
  Receive Date: 20100708
  Receipt Date: 20100708
  Transmission Date: 20110219
  Serious: Yes (Hospitalization)
  Sender: FDA-Public Use
  Company Number: None

PATIENT
  Sex: Male
  Weight: 87.8 kg

DRUGS (3)
  1. CYCLOPHOSPHAMIDE [Suspect]
     Dosage: 957 MG
     Dates: end: 20100616
  2. FLUDARABINE PHOSPHATE [Suspect]
     Dosage: 126 MG
     Dates: end: 20100616
  3. RITUXIMAB (MOAB C2B8 ANTI CD20, CHIMERIC) [Suspect]
     Dosage: 800 MG
     Dates: end: 20100616

REACTIONS (9)
  - CARDIAC FAILURE [None]
  - CELLULITIS [None]
  - CORONARY ARTERY DISEASE [None]
  - DEEP VEIN THROMBOSIS [None]
  - DYSPNOEA [None]
  - INTERNATIONAL NORMALISED RATIO DECREASED [None]
  - OEDEMA [None]
  - THROMBOCYTOPENIA [None]
  - TUMOUR LYSIS SYNDROME [None]
